FAERS Safety Report 5941317-9 (Version None)
Quarter: 2008Q4

REPORT INFORMATION
  Report Type: 
  Country: None (occurrence: None)
  Receive Date: 20081103
  Receipt Date: 20081024
  Transmission Date: 20090506
  Serious: Yes (Hospitalization)
  Sender: FDA-Public Use
  Company Number: 2008BI028621

PATIENT
  Age: 52 Year
  Sex: Female

DRUGS (3)
  1. AVONEX [Suspect]
     Indication: MULTIPLE SCLEROSIS
     Dosage: 30 UG; QW; IM
     Route: 030
     Dates: start: 20080529
  2. . [Concomitant]
  3. . [Concomitant]

REACTIONS (4)
  - DEHYDRATION [None]
  - DIALYSIS [None]
  - GASTROENTERITIS [None]
  - RENAL FAILURE [None]
